FAERS Safety Report 24333021 (Version 2)
Quarter: 2024Q4

REPORT INFORMATION
  Report Type: Spontaneous
  Country: HU (occurrence: HU)
  Receive Date: 20240918
  Receipt Date: 20241029
  Transmission Date: 20250115
  Serious: Yes (Hospitalization, Other)
  Sender: ROCHE
  Company Number: None

PATIENT
  Sex: Male

DRUGS (2)
  1. RITUXIMAB [Suspect]
     Active Substance: RITUXIMAB
     Indication: Rheumatoid arthritis
     Dosage: 24 CYCLES
     Route: 065
     Dates: start: 2009, end: 2022
  2. IMMUNE GLOBULIN NOS [Concomitant]
     Active Substance: IMMUNE GLOBULIN NOS
     Indication: Supplementation therapy
     Dosage: UNK
     Route: 065

REACTIONS (6)
  - Hypogammaglobulinaemia [Unknown]
  - Pneumonia chlamydial [Unknown]
  - Aspergillus infection [Unknown]
  - Pneumocystis jirovecii pneumonia [Unknown]
  - Pneumonia staphylococcal [Unknown]
  - Pneumonia [Unknown]
